FAERS Safety Report 5135354-4 (Version None)
Quarter: 2006Q4

REPORT INFORMATION
  Report Type: 
  Country: None (occurrence: None)
  Receive Date: 20061026
  Receipt Date: 20060411
  Transmission Date: 20070319
  Serious: No
  Sender: FDA-Public Use
  Company Number: US-GLAXOSMITHKLINE-A0601384A

PATIENT
  Age: 19 Year
  Sex: Female

DRUGS (3)
  1. IMITREX [Suspect]
     Indication: MIGRAINE
     Dosage: 20MG AS REQUIRED
     Route: 045
     Dates: start: 19970401
  2. IMITREX [Suspect]
     Dosage: 6MG AS REQUIRED
     Route: 058
  3. TOPAMAX [Concomitant]

REACTIONS (6)
  - DRUG INEFFECTIVE [None]
  - HYPERACUSIS [None]
  - HYPERAESTHESIA [None]
  - INJECTION SITE PAIN [None]
  - MIGRAINE [None]
  - PHOTOPHOBIA [None]
